FAERS Safety Report 5010122-2 (Version None)
Quarter: 2006Q2

REPORT INFORMATION
  Report Type: 
  Country: None (occurrence: None)
  Receive Date: 20060404
  Receipt Date: 20051117
  Transmission Date: 20061013
  Serious: No
  Sender: FDA-Public Use
  Company Number: US200511002027

PATIENT
  Sex: Female

DRUGS (2)
  1. CYMBALTA [Suspect]
     Indication: DIABETIC NEUROPATHY
     Dosage: 30 MG
  2. INFLUENZA VACCINE (INFLUENZA VACCINE) [Concomitant]

REACTIONS (4)
  - DEPRESSION [None]
  - INFLUENZA LIKE ILLNESS [None]
  - INSOMNIA [None]
  - NAUSEA [None]
